FAERS Safety Report 6625621-7 (Version None)
Quarter: 2010Q1

REPORT INFORMATION
  Report Type: 
  Country: None (occurrence: None)
  Receive Date: 20100223
  Receipt Date: 20091221
  Transmission Date: 20100710
  Serious: No
  Sender: FDA-Public Use
  Company Number: 003506

PATIENT
  Sex: Female
  Weight: 51.2 kg

DRUGS (6)
  1. CIMZIA [Suspect]
     Indication: CROHN'S DISEASE
     Dosage: 400 MG SUBCUTANEOUS
     Route: 058
     Dates: start: 20080101
  2. RESTASIS [Concomitant]
  3. POTASSIUM [Concomitant]
  4. MULTI-VITAMINS [Concomitant]
  5. BONIVA [Concomitant]
  6. DICHLORVOS [Concomitant]

REACTIONS (3)
  - PRODUCTIVE COUGH [None]
  - UPPER RESPIRATORY TRACT CONGESTION [None]
  - WEIGHT INCREASED [None]
